FAERS Safety Report 18191559 (Version 1)
Quarter: 2020Q3

REPORT INFORMATION
  Report Type: Spontaneous
  Country: US (occurrence: US)
  Receive Date: 20200824
  Receipt Date: 20200824
  Transmission Date: 20201103
  Serious: Yes (Hospitalization)
  Sender: FDA-Public Use
  Company Number: None

PATIENT
  Age: 51 Year
  Sex: Male
  Weight: 59 kg

DRUGS (13)
  1. PANTOPRAZOLE [Concomitant]
     Active Substance: PANTOPRAZOLE
     Dates: start: 20200426
  2. CLONAZEPAM. [Concomitant]
     Active Substance: CLONAZEPAM
     Dates: start: 20200428, end: 20200428
  3. CLOZAPINE. [Suspect]
     Active Substance: CLOZAPINE
     Indication: SCHIZOPHRENIA
     Route: 048
     Dates: start: 20200427, end: 20200813
  4. INVEGA TRINZA 819MG [Concomitant]
     Dates: start: 20200416
  5. DOLUTEGRAVIR [Concomitant]
     Active Substance: DOLUTEGRAVIR
     Dates: start: 20200501, end: 20200508
  6. GLIMIPERIDE [Concomitant]
     Active Substance: GLIMEPIRIDE
     Dates: start: 20190429
  7. METFORMIN [Concomitant]
     Active Substance: METFORMIN HYDROCHLORIDE
     Dates: start: 20190522
  8. THIAMINE. [Concomitant]
     Active Substance: THIAMINE
     Dates: start: 20200428
  9. LEVOTHYROXINE. [Concomitant]
     Active Substance: LEVOTHYROXINE
     Dates: start: 20190429
  10. BENZOCAINE ORAL GEL [Concomitant]
     Dates: start: 20200501, end: 20200722
  11. AUGMENTIN [Concomitant]
     Active Substance: AMOXICILLIN\CLAVULANATE POTASSIUM
     Dates: start: 20200501, end: 20200511
  12. DESCOVY [Concomitant]
     Active Substance: EMTRICITABINE\TENOFOVIR ALAFENAMIDE FUMARATE
     Dates: start: 20200501, end: 20200508
  13. ATORVASTATIN [Concomitant]
     Active Substance: ATORVASTATIN
     Dates: start: 20200427

REACTIONS (1)
  - Eosinophilia [None]

NARRATIVE: CASE EVENT DATE: 20200513
